FAERS Safety Report 8405317-1 (Version None)
Quarter: 2012Q2

REPORT INFORMATION
  Report Type: 
  Country: None (occurrence: None)
  Receive Date: 20120604
  Receipt Date: 20120531
  Transmission Date: 20120825
  Serious: Yes (Other)
  Sender: FDA-Public Use
  Company Number: JP-BRISTOL-MYERS SQUIBB COMPANY-16606444

PATIENT
  Age: 4 Decade
  Sex: Female

DRUGS (1)
  1. BARACLUDE [Suspect]
     Indication: CHRONIC HEPATITIS
     Route: 048

REACTIONS (2)
  - ABORTION [None]
  - PREGNANCY [None]
